FAERS Safety Report 9235823 (Version 1)
Quarter: 2013Q2

REPORT INFORMATION
  Report Type: Spontaneous
  Country: US (occurrence: None)
  Receive Date: 20130416
  Receipt Date: 20130416
  Transmission Date: 20140414
  Serious: No
  Sender: FDA-Public Use
  Company Number: None

PATIENT
  Age: 41 Year
  Sex: Male
  Weight: 74.84 kg

DRUGS (1)
  1. ADDERALL [Suspect]
     Indication: DISTURBANCE IN ATTENTION
     Dosage: 1 DOSE DAILY PO
     Route: 048
     Dates: start: 20120101, end: 20130415

REACTIONS (2)
  - Product substitution issue [None]
  - Product measured potency issue [None]
